FAERS Safety Report 7528331-7 (Version None)
Quarter: 2011Q2

REPORT INFORMATION
  Report Type: 
  Country: None (occurrence: None)
  Receive Date: 20110607
  Receipt Date: 20110308
  Transmission Date: 20111010
  Serious: No
  Sender: FDA-Public Use
  Company Number: US-ASTRAZENECA-2011SE13350

PATIENT
  Sex: Female

DRUGS (4)
  1. TAGAMET [Concomitant]
  2. ZANTAC [Concomitant]
  3. OMEPRAZOLE [Suspect]
     Route: 048
  4. PRILOSEC OTC [Suspect]
     Route: 048

REACTIONS (3)
  - GASTROOESOPHAGEAL REFLUX DISEASE [None]
  - DRUG INEFFECTIVE [None]
  - DYSPEPSIA [None]
